FAERS Safety Report 9678167 (Version 1)
Quarter: 2013Q4

REPORT INFORMATION
  Report Type: Spontaneous
  Country: JP (occurrence: JP)
  Receive Date: 20131108
  Receipt Date: 20131108
  Transmission Date: 20140711
  Serious: Yes (Disabling)
  Sender: FDA-Public Use
  Company Number: JP-ASTRAZENECA-2013SE80581

PATIENT
  Age: 73 Year
  Sex: Female
  Weight: 54 kg

DRUGS (3)
  1. ANAPEINE [Suspect]
     Indication: ANALGESIC THERAPY
     Dosage: 4 ML/HR CONTINUOUSLY
     Route: 008
  2. FENTANYL [Concomitant]
     Indication: ANALGESIC THERAPY
     Dosage: 4 ML/HR CONTINUOUSLY
     Route: 008
  3. LIDOCAINE [Concomitant]

REACTIONS (1)
  - Cauda equina syndrome [Recovered/Resolved with Sequelae]
